FAERS Safety Report 15654158 (Version 3)
Quarter: 2019Q3

REPORT INFORMATION
  Report Type: Report from Study
  Country: CA (occurrence: CA)
  Receive Date: 20181125
  Receipt Date: 20190909
  Transmission Date: 20191004
  Serious: Yes (Hospitalization, Other)
  Sender: FDA-Public Use
  Company Number: CA-BRISTOL-MYERS SQUIBB COMPANY-BMS-2017-048845

PATIENT
  Age: 20 Year
  Sex: Female

DRUGS (1)
  1. ABATACEPT [Suspect]
     Active Substance: ABATACEPT
     Indication: JUVENILE IDIOPATHIC ARTHRITIS
     Dosage: 500 MG, Q4WK
     Route: 042
     Dates: start: 20151105

REACTIONS (16)
  - Inappropriate schedule of product administration [Unknown]
  - Fatigue [Unknown]
  - Arthropathy [Not Recovered/Not Resolved]
  - Cytomegalovirus infection [Recovering/Resolving]
  - Arthralgia [Unknown]
  - Pain in extremity [Unknown]
  - Hospitalisation [Not Recovered/Not Resolved]
  - Pallor [Unknown]
  - Nausea [Not Recovered/Not Resolved]
  - Influenza [Unknown]
  - Tooth abscess [Recovering/Resolving]
  - Cough [Unknown]
  - Joint stiffness [Unknown]
  - Lung infection [Not Recovered/Not Resolved]
  - Treatment noncompliance [Unknown]
  - Sputum discoloured [Recovering/Resolving]

NARRATIVE: CASE EVENT DATE: 20170522
